FAERS Safety Report 25980540 (Version 1)
Quarter: 2025Q4

REPORT INFORMATION
  Report Type: Spontaneous
  Country: US (occurrence: US)
  Receive Date: 20251030
  Receipt Date: 20251030
  Transmission Date: 20260118
  Serious: No
  Sender: TAKEDA
  Company Number: US-TAKEDA-2025TUS095043

PATIENT

DRUGS (1)
  1. FLEXBUMIN [Suspect]
     Active Substance: ALBUMIN HUMAN
     Indication: Paracentesis
     Dosage: UNK

REACTIONS (3)
  - Hypertension [Unknown]
  - Urticaria [Unknown]
  - Hypotension [Unknown]
